FAERS Safety Report 5523372-3 (Version None)
Quarter: 2007Q4

REPORT INFORMATION
  Report Type: 
  Country: None (occurrence: None)
  Receive Date: 20071121
  Receipt Date: 20071120
  Transmission Date: 20080405
  Serious: Yes (Other)
  Sender: FDA-Public Use
  Company Number: B0496120A

PATIENT
  Age: 84 Year
  Sex: Male

DRUGS (1)
  1. SERETIDE [Suspect]
     Dosage: 500MCG PER DAY
     Route: 055
     Dates: start: 20070611, end: 20070618

REACTIONS (2)
  - CHILLS [None]
  - HYPOTHERMIA [None]
